FAERS Safety Report 5391171-1 (Version None)
Quarter: 2007Q3

REPORT INFORMATION
  Report Type: 
  Country: None (occurrence: None)
  Receive Date: 20070719
  Receipt Date: 20070711
  Transmission Date: 20080115
  Serious: Yes (Other)
  Sender: FDA-Public Use
  Company Number: JP-PFIZER INC-2007055446

PATIENT
  Age: 31 Year
  Sex: Female

DRUGS (5)
  1. ATARAX [Suspect]
     Indication: HYPERSENSITIVITY
     Dosage: DAILY DOSE:25MG
     Route: 048
  2. RISPERDAL [Suspect]
     Indication: SCHIZOPHRENIA
     Route: 048
  3. RIZE [Suspect]
     Indication: SCHIZOPHRENIA
     Route: 048
  4. ALLELOCK [Concomitant]
     Route: 048
  5. ZESULAN [Concomitant]
     Route: 048

REACTIONS (2)
  - BLOOD PROLACTIN INCREASED [None]
  - GALACTORRHOEA [None]
